FAERS Safety Report 5696090-9 (Version None)
Quarter: 2008Q2

REPORT INFORMATION
  Report Type: 
  Country: None (occurrence: None)
  Receive Date: 20080407
  Receipt Date: 20080404
  Transmission Date: 20081010
  Serious: Yes (Death)
  Sender: FDA-Public Use
  Company Number: B0515274A

PATIENT
  Age: 27 Year
  Sex: Male

DRUGS (1)
  1. ARRANON [Suspect]
     Dosage: 2625MG PER DAY
     Route: 042
     Dates: start: 20080324, end: 20080326

REACTIONS (2)
  - DEATH [None]
  - HEPATIC FAILURE [None]
